FAERS Safety Report 8210411-4 (Version None)
Quarter: 2012Q1

REPORT INFORMATION
  Report Type: 
  Country: None (occurrence: None)
  Receive Date: 20120314
  Receipt Date: 20120110
  Transmission Date: 20120608
  Serious: No
  Sender: FDA-Public Use
  Company Number: US-ASTRAZENECA-2012SE02318

PATIENT
  Age: 29 Year
  Sex: Female
  Weight: 61.2 kg

DRUGS (2)
  1. TOPROL-XL [Suspect]
     Indication: SUPRAVENTRICULAR TACHYCARDIA
     Route: 048
  2. LEXAPRO [Concomitant]
     Indication: ANXIETY

REACTIONS (2)
  - ASTHENIA [None]
  - OFF LABEL USE [None]
